FAERS Safety Report 11654232 (Version 4)
Quarter: 2018Q3

REPORT INFORMATION
  Report Type: Spontaneous
  Country: CA (occurrence: CA)
  Receive Date: 20151023
  Receipt Date: 20180822
  Transmission Date: 20181010
  Serious: Yes (Hospitalization, Other)
  Sender: FDA-Public Use
  Company Number: CA-ROCHE-1649109

PATIENT
  Age: 37 Year
  Sex: Female

DRUGS (5)
  1. XOLAIR [Suspect]
     Active Substance: OMALIZUMAB
     Route: 058
     Dates: start: 20160308
  2. XOLAIR [Suspect]
     Active Substance: OMALIZUMAB
     Route: 058
     Dates: start: 20150317
  3. XOLAIR [Suspect]
     Active Substance: OMALIZUMAB
     Route: 058
     Dates: start: 20150825
  4. XOLAIR [Suspect]
     Active Substance: OMALIZUMAB
     Indication: ASTHMA
     Route: 058
     Dates: start: 20140905
  5. XOLAIR [Suspect]
     Active Substance: OMALIZUMAB
     Route: 058
     Dates: start: 20150219

REACTIONS (12)
  - Pain [Unknown]
  - Weight decreased [Unknown]
  - Jugular vein thrombosis [Unknown]
  - Anxiety [Unknown]
  - Cerebral thrombosis [Unknown]
  - Respiratory disorder [Unknown]
  - Blood pressure systolic increased [Unknown]
  - Malaise [Unknown]
  - Influenza [Unknown]
  - Myalgia [Unknown]
  - Lymphadenopathy [Unknown]
  - Body temperature decreased [Unknown]

NARRATIVE: CASE EVENT DATE: 20150105
